FAERS Safety Report 10153638 (Version 1)
Quarter: 2014Q2

REPORT INFORMATION
  Report Type: Spontaneous
  Country: CA (occurrence: CA)
  Receive Date: 20140505
  Receipt Date: 20140505
  Transmission Date: 20141212
  Serious: Yes (Other)
  Sender: FDA-Public Use
  Company Number: CA-AMGEN INC.-CANSP2014031552

PATIENT
  Age: 79 Year
  Sex: Female

DRUGS (6)
  1. PROLIA [Suspect]
     Indication: OSTEOPOROSIS
     Dosage: 60 MG, Q6MO
     Route: 058
     Dates: start: 201009
  2. PRADAXA [Concomitant]
  3. VITAMIN D3 [Concomitant]
  4. DIGOXIN [Concomitant]
  5. MAGNESIUM [Concomitant]
  6. RELIV [Concomitant]

REACTIONS (8)
  - Adrenal mass [Unknown]
  - Rib fracture [Not Recovered/Not Resolved]
  - Continuous positive airway pressure [Unknown]
  - Incisional hernia repair [Unknown]
  - Gastric disorder [Unknown]
  - Abdominal discomfort [Unknown]
  - Posture abnormal [Unknown]
  - Weight decreased [Unknown]
